FAERS Safety Report 7652284-4 (Version None)
Quarter: 2011Q3

REPORT INFORMATION
  Report Type: 
  Country: None (occurrence: None)
  Receive Date: 20110803
  Receipt Date: 20110801
  Transmission Date: 20111222
  Serious: Yes (Death, Hospitalization, Other)
  Sender: FDA-Public Use
  Company Number: US-AMGEN-QUU425143

PATIENT
  Age: 86 Year
  Sex: Female
  Weight: 94.9 kg

DRUGS (11)
  1. NPLATE [Suspect]
     Indication: IDIOPATHIC THROMBOCYTOPENIC PURPURA
     Dosage: 950 A?G, QWK
     Route: 058
     Dates: start: 20100310, end: 20100609
  2. ELTROMBOPAG [Concomitant]
  3. CITALOPRAM [Concomitant]
     Dosage: 20 MG, UNK
  4. ALPRAZOLAM [Concomitant]
     Dosage: .5 MG, PRN
  5. FUROSEMIDE [Concomitant]
     Dosage: 40 MG, UNK
  6. HYDROCODONE [Concomitant]
     Dosage: 5 MG, UNK
  7. HYDROXYZINE HCL [Concomitant]
     Dosage: 10 MG, UNK
  8. FISH OIL [Concomitant]
  9. STOOL SOFTENER [Concomitant]
  10. DESIPRAMIDE HCL [Concomitant]
     Dosage: 75 MG, UNK
  11. SIMVASTATIN [Concomitant]
     Dosage: 20 MG, UNK

REACTIONS (3)
  - IDIOPATHIC THROMBOCYTOPENIC PURPURA [None]
  - DRUG INEFFECTIVE [None]
  - THERAPEUTIC RESPONSE DECREASED [None]
